FAERS Safety Report 8488182-6 (Version None)
Quarter: 2012Q3

REPORT INFORMATION
  Report Type: 
  Country: None (occurrence: None)
  Receive Date: 20120705
  Receipt Date: 20120621
  Transmission Date: 20120928
  Serious: Yes (Hospitalization)
  Sender: FDA-Public Use
  Company Number: NL-CELGENEUS-114-20785-12020401

PATIENT
  Sex: Male

DRUGS (11)
  1. OXYCODONE HCL [Concomitant]
     Route: 048
     Dates: start: 20111206
  2. PREDNISONE [Suspect]
     Indication: MULTIPLE MYELOMA
     Dosage: 160 MILLIGRAM
     Route: 048
     Dates: start: 20120119, end: 20120122
  3. DICLOFENAC SODIUM [Concomitant]
     Indication: PAIN
     Route: 048
     Dates: start: 20111202
  4. MELPHALAN HYDROCHLORIDE [Suspect]
     Indication: MULTIPLE MYELOMA
     Dosage: 14 MILLIGRAM
     Route: 048
     Dates: start: 20120119, end: 20120122
  5. SIMVASTATIN [Concomitant]
     Route: 048
     Dates: start: 20111027
  6. PANTOPRAZOLE [Concomitant]
     Route: 048
  7. THALIDOMIDE [Suspect]
     Route: 048
     Dates: start: 20120207
  8. OXYCONTIN [Concomitant]
     Route: 048
  9. ACETAMINOPHEN [Concomitant]
     Indication: PAIN
     Route: 048
  10. CARBASALAAT CALCIUM [Concomitant]
     Route: 048
  11. THALIDOMIDE [Suspect]
     Indication: MULTIPLE MYELOMA
     Dosage: 100 MILLIGRAM
     Route: 048
     Dates: start: 20120119, end: 20120129

REACTIONS (2)
  - ESCHERICHIA URINARY TRACT INFECTION [None]
  - ANAEMIA [None]
